FAERS Safety Report 8590446-2 (Version None)
Quarter: 2012Q3

REPORT INFORMATION
  Report Type: 
  Country: None (occurrence: None)
  Receive Date: 20120813
  Receipt Date: 20120803
  Transmission Date: 20120928
  Serious: Yes (Hospitalization)
  Sender: FDA-Public Use
  Company Number: US-ABBOTT-08P-163-0482444-00

PATIENT
  Sex: Male
  Weight: 74.91 kg

DRUGS (12)
  1. VITAMIN B-12 [Concomitant]
     Indication: VITAMIN SUPPLEMENTATION
  2. LEXAPRO [Concomitant]
     Indication: DEPRESSION
  3. RANITIDINE [Concomitant]
     Indication: DYSPEPSIA
  4. FOLIC ACID [Concomitant]
     Indication: VITAMIN SUPPLEMENTATION
  5. MULTI-VITAMIN [Concomitant]
     Indication: VITAMIN SUPPLEMENTATION
  6. HUMIRA [Suspect]
     Indication: CROHN'S DISEASE
     Route: 058
     Dates: start: 20080301
  7. LORAZAPINE [Concomitant]
     Indication: PRODUCT USED FOR UNKNOWN INDICATION
  8. IMURAN [Concomitant]
     Indication: CROHN'S DISEASE
  9. PRILOSEC [Concomitant]
     Indication: PRODUCT USED FOR UNKNOWN INDICATION
  10. SYNTHROID [Concomitant]
     Indication: HYPOTHYROIDISM
  11. TYLENOL [Concomitant]
     Indication: PRODUCT USED FOR UNKNOWN INDICATION
  12. ZYTEC [Concomitant]
     Indication: PRODUCT USED FOR UNKNOWN INDICATION

REACTIONS (20)
  - PYREXIA [None]
  - MUSCULOSKELETAL STIFFNESS [None]
  - ENZYME LEVEL DECREASED [None]
  - GASTROINTESTINAL TRACT MUCOSAL DISCOLOURATION [None]
  - INFECTION [None]
  - INFLUENZA [None]
  - DIARRHOEA [None]
  - GASTROINTESTINAL OEDEMA [None]
  - FISTULA [None]
  - GASTROINTESTINAL TRACT IRRITATION [None]
  - RAPID EYE MOVEMENTS SLEEP ABNORMAL [None]
  - ASTHMA [None]
  - RHINORRHOEA [None]
  - BRONCHITIS [None]
  - ABSCESS [None]
  - POST PROCEDURAL DISCOMFORT [None]
  - NEPHROLITHIASIS [None]
  - CROHN'S DISEASE [None]
  - URINE OUTPUT DECREASED [None]
  - INSOMNIA [None]
